FAERS Safety Report 8413842-2 (Version None)
Quarter: 2012Q2

REPORT INFORMATION
  Report Type: 
  Country: None (occurrence: None)
  Receive Date: 20120605
  Receipt Date: 20120522
  Transmission Date: 20120825
  Serious: No
  Sender: FDA-Public Use
  Company Number: US-ASTRAZENECA-2012SE32964

PATIENT
  Sex: Female

DRUGS (2)
  1. SYMBICORT [Suspect]
     Dosage: 160/4.5 MCG, ONE PUFFS, UNKNOWN
     Route: 055
  2. SYMBICORT [Suspect]
     Dosage: 80/4.5 MCG, TWO PUFFS, UNKNOWN
     Route: 055

REACTIONS (2)
  - DYSTONIA [None]
  - OFF LABEL USE [None]
